FAERS Safety Report 23219035 (Version 1)
Quarter: 2023Q4

REPORT INFORMATION
  Report Type: Other
  Country: US (occurrence: US)
  Receive Date: 20231122
  Receipt Date: 20231122
  Transmission Date: 20240110
  Serious: Yes (Hospitalization)
  Sender: FDA-Public Use
  Company Number: US-ALVOGEN-2023092628

PATIENT
  Age: 50 Year
  Sex: Male

DRUGS (8)
  1. HYDROCODONE BITARTRATE AND ACETAMINOPHEN [Suspect]
     Active Substance: ACETAMINOPHEN\HYDROCODONE BITARTRATE
     Indication: Product used for unknown indication
     Dosage: STRENGTH: 10 MG/325 MG EVERY 8 HOURS AS NEEDED
  2. HYDROCODONE BITARTRATE AND ACETAMINOPHEN [Suspect]
     Active Substance: ACETAMINOPHEN\HYDROCODONE BITARTRATE
     Indication: Product used for unknown indication
     Dosage: STRENGTH: 10 MG/325 MG INCREASED TO EVERY 4 HOURS AS NEEDED IN THE HOSPITAL
  3. HYDROCODONE BITARTRATE AND ACETAMINOPHEN [Suspect]
     Active Substance: ACETAMINOPHEN\HYDROCODONE BITARTRATE
     Indication: Product used for unknown indication
     Dosage: AT HOSPITAL DISCHARGE: STRENGTH: 10 MG/325 MG?DECREASED TO EVERY 8 HOURS AS NEEDED
  4. HYDROMORPHONE [Suspect]
     Active Substance: HYDROMORPHONE
     Indication: Pain
     Dosage: AS NEEDED
     Route: 040
  5. SEVELAMER [Concomitant]
     Active Substance: SEVELAMER
     Indication: Product used for unknown indication
     Dosage: EVERY 8 HOURS AS NEEDED
  6. SEVELAMER [Concomitant]
     Active Substance: SEVELAMER
     Indication: Product used for unknown indication
     Dosage: INCREASED TO EVERY 4 HOURS AS NEEDED IN THE HOSPITAL
  7. SEVELAMER [Concomitant]
     Active Substance: SEVELAMER
     Indication: Product used for unknown indication
     Dosage: AT HOSPITAL DISCHARGE: DOSE DECREASED TO EVERY 8 HOURS AS NEEDED.
  8. LANTHANUM [Concomitant]
     Active Substance: LANTHANUM
     Indication: Hyperphosphataemia
     Dosage: DAILY

REACTIONS (1)
  - Apnoeic attack [Unknown]
